FAERS Safety Report 6648854-2 (Version None)
Quarter: 2010Q2

REPORT INFORMATION
  Report Type: 
  Country: None (occurrence: None)
  Receive Date: 20100324
  Receipt Date: 20100318
  Transmission Date: 20101027
  Serious: Yes (Hospitalization, Other)
  Sender: FDA-Public Use
  Company Number: PHHY2010BR16720

PATIENT
  Sex: Female

DRUGS (4)
  1. EXFORGE [Suspect]
     Dosage: 160/5 MG; UNK
     Route: 048
  2. APRESOLINE [Suspect]
     Dosage: 25 MG, UNK
  3. AMIODARONE [Concomitant]
     Dosage: 200 MG, UNK
  4. SIMVASTATIN [Concomitant]
     Dosage: 20 MG, UNK

REACTIONS (1)
  - VASCULAR GRAFT [None]
